FAERS Safety Report 9769373 (Version 3)
Quarter: 2014Q1

REPORT INFORMATION
  Report Type: Report from Study
  Country: CN (occurrence: CN)
  Receive Date: 20131218
  Receipt Date: 20140120
  Transmission Date: 20141002
  Serious: Yes (Hospitalization)
  Sender: FDA-Public Use
  Company Number: CN-ROCHE-1318873

PATIENT
  Age: 45 Year
  Sex: Female
  Weight: 44.5 kg

DRUGS (17)
  1. OBINUTUZUMAB [Suspect]
     Indication: NON-HODGKIN^S LYMPHOMA UNSPECIFIED HISTOLOGY INDOLENT
     Dosage: MOST RECENT DOSE RECEIVED ON 18/NOV/2013 AT A DOSE CONCENTRATION OF 4 MG/ML AND VOLUME 250 ML
     Route: 042
     Dates: start: 20130916
  2. CYCLOPHOSPHAMIDE [Suspect]
     Indication: NON-HODGKIN^S LYMPHOMA UNSPECIFIED HISTOLOGY INDOLENT
     Dosage: MOST RECENT DOSE RECEIVED ON 19/NOV/2013 AT A DOSE OF 1050 MG.
     Route: 042
     Dates: start: 20130917
  3. DOXORUBICIN [Suspect]
     Indication: NON-HODGKIN^S LYMPHOMA UNSPECIFIED HISTOLOGY INDOLENT
     Dosage: MOST RECENT DOSE RECEIVED ON 19/NOV/2013 AT A DOSE OF 70 MG.
     Route: 042
     Dates: start: 20130917
  4. VINCRISTINE [Suspect]
     Indication: NON-HODGKIN^S LYMPHOMA UNSPECIFIED HISTOLOGY INDOLENT
     Dosage: MOST RECENT DOSE RECEIVED ON 19/NOV/2013 AT A DOSE OF 2 MG.
     Route: 040
     Dates: start: 20130917
  5. PREDNISONE [Suspect]
     Indication: NON-HODGKIN^S LYMPHOMA UNSPECIFIED HISTOLOGY INDOLENT
     Dosage: MOST RECENT DOSE RECEIVED ON 23/NOV/2013 AT A DOSE OF 100 MG.
     Route: 048
     Dates: start: 20130917
  6. MYRTOL [Concomitant]
     Indication: INCREASED UPPER AIRWAY SECRETION
     Route: 065
     Dates: start: 20131217, end: 20131221
  7. PARACETAMOL [Concomitant]
     Indication: PAIN
     Route: 065
     Dates: start: 20131118, end: 20131118
  8. STILNOX [Concomitant]
     Route: 065
     Dates: start: 20130909
  9. OMEPRAZOLE [Concomitant]
     Route: 065
     Dates: start: 20131029, end: 20131111
  10. OMEPRAZOLE [Concomitant]
     Route: 065
     Dates: start: 20131119
  11. OMEPRAZOLE [Concomitant]
     Route: 065
     Dates: start: 20131218, end: 20140106
  12. OMEPRAZOLE [Concomitant]
     Route: 065
     Dates: start: 20131209, end: 20131217
  13. PROMETHAZINE HYDROCHLORIDE [Concomitant]
     Indication: SEDATION
     Route: 065
     Dates: start: 20131118, end: 20131118
  14. PALONOSETRON HYDROCHLORIDE [Concomitant]
     Indication: VOMITING
     Route: 065
     Dates: start: 20131119, end: 20131119
  15. INDOMETACIN [Concomitant]
     Indication: SEDATION
     Route: 065
     Dates: start: 20131209, end: 20131209
  16. BUFFERIN COLD (CHINA) [Concomitant]
     Route: 065
     Dates: start: 20131219, end: 20131224
  17. AZITHROMYCIN [Concomitant]
     Route: 065
     Dates: start: 20131209, end: 20131217

REACTIONS (1)
  - Interstitial lung disease [Recovered/Resolved]
